FAERS Safety Report 10250802 (Version 2)
Quarter: 2014Q3

REPORT INFORMATION
  Report Type: Spontaneous
  Country: JP (occurrence: JP)
  Receive Date: 20140620
  Receipt Date: 20140721
  Transmission Date: 20150326
  Serious: Yes (Other)
  Sender: FDA-Public Use
  Company Number: JP-ABBVIE-14P-087-1250136-00

PATIENT
  Sex: Female

DRUGS (15)
  1. SODIUM VALPROATE [Suspect]
     Active Substance: VALPROATE SODIUM
     Indication: SUICIDE ATTEMPT
     Dosage: ONCE
  2. PROMETHAZINE HYDROCHLORIDE. [Suspect]
     Active Substance: PROMETHAZINE HYDROCHLORIDE
     Indication: SUICIDE ATTEMPT
     Dosage: ONCE
  3. PHENOBARBITAL. [Suspect]
     Active Substance: PHENOBARBITAL
     Indication: DEPRESSION
  4. FLUNITRAZEPAM [Suspect]
     Active Substance: FLUNITRAZEPAM
     Indication: SUICIDE ATTEMPT
     Dosage: ONCE
  5. PROMETHAZINE HYDROCHLORIDE. [Suspect]
     Active Substance: PROMETHAZINE HYDROCHLORIDE
     Indication: DEPRESSION
  6. PHENOBARBITAL. [Suspect]
     Active Substance: PHENOBARBITAL
     Indication: SUICIDE ATTEMPT
     Dosage: ONCE
  7. ETIZOLAM [Suspect]
     Active Substance: ETIZOLAM
     Indication: SUICIDE ATTEMPT
     Dosage: ONCE
  8. ETIZOLAM [Suspect]
     Active Substance: ETIZOLAM
     Indication: DEPRESSION
  9. FLUNITRAZEPAM [Suspect]
     Active Substance: FLUNITRAZEPAM
     Indication: DEPRESSION
  10. SODIUM VALPROATE [Suspect]
     Active Substance: VALPROATE SODIUM
     Indication: DEPRESSION
  11. CHLORPROMAZINE [Suspect]
     Active Substance: CHLORPROMAZINE
     Indication: SUICIDE ATTEMPT
  12. ZOPICLONE [Suspect]
     Active Substance: ZOPICLONE
     Indication: SUICIDE ATTEMPT
     Dosage: ONCE
  13. FLUVOXAMINE MALEATE. [Suspect]
     Active Substance: FLUVOXAMINE MALEATE
     Indication: SUICIDE ATTEMPT
     Dosage: ONCE
  14. ZOPICLONE [Suspect]
     Active Substance: ZOPICLONE
     Indication: DEPRESSION
  15. CHLORPROMAZINE [Suspect]
     Active Substance: CHLORPROMAZINE
     Indication: DEPRESSION

REACTIONS (3)
  - Overdose [Unknown]
  - Suicide attempt [Unknown]
  - Off label use [Unknown]
